FAERS Safety Report 24880546 (Version 1)
Quarter: 2025Q1

REPORT INFORMATION
  Report Type: Spontaneous
  Country: US (occurrence: US)
  Receive Date: 20250123
  Receipt Date: 20250123
  Transmission Date: 20250409
  Serious: Yes (Other)
  Sender: MERCK
  Company Number: US-009507513-2411USA010873

PATIENT
  Age: 55 Year
  Sex: Female

DRUGS (1)
  1. KEYTRUDA [Suspect]
     Active Substance: PEMBROLIZUMAB
     Indication: Lung adenocarcinoma
     Dosage: 200 MILLIGRAM, EVERY THREE WEEKS
     Dates: start: 20231002, end: 20240520

REACTIONS (2)
  - Immune-mediated gastritis [Recovering/Resolving]
  - Intussusception [Recovering/Resolving]

NARRATIVE: CASE EVENT DATE: 20240701
